FAERS Safety Report 17511915 (Version 2)
Quarter: 2020Q1

REPORT INFORMATION
  Report Type: Spontaneous
  Country: RO (occurrence: RO)
  Receive Date: 20200306
  Receipt Date: 20200312
  Transmission Date: 20200409
  Serious: Yes (Other)
  Sender: FDA-Public Use
  Company Number: RO-MYLANLABS-2020M1023438

PATIENT
  Age: 40 Year
  Sex: Male

DRUGS (10)
  1. PYRAZINAMIDE. [Concomitant]
     Active Substance: PYRAZINAMIDE
     Indication: PULMONARY TUBERCULOSIS
     Dosage: UNK
     Route: 065
  2. RIFAMPICIN [Concomitant]
     Active Substance: RIFAMPIN
     Indication: PULMONARY TUBERCULOSIS
     Dosage: UNK
     Route: 065
  3. AZATHIOPRINE. [Suspect]
     Active Substance: AZATHIOPRINE
     Indication: MICROSCOPIC POLYANGIITIS
     Dosage: UNK
     Route: 065
  4. CIPROFLOXACIN. [Concomitant]
     Active Substance: CIPROFLOXACIN
     Indication: EVIDENCE BASED TREATMENT
     Dosage: UNK
     Route: 065
  5. PREDNISONE. [Suspect]
     Active Substance: PREDNISONE
     Indication: MICROSCOPIC POLYANGIITIS
     Dosage: UNK
     Route: 065
  6. CYCLOPHOSPHAMIDE. [Suspect]
     Active Substance: CYCLOPHOSPHAMIDE
     Indication: MICROSCOPIC POLYANGIITIS
     Dosage: UNK
     Route: 065
  7. ETHAMBUTOL [Suspect]
     Active Substance: ETHAMBUTOL HYDROCHLORIDE
     Indication: PULMONARY TUBERCULOSIS
     Dosage: UNK
     Route: 065
  8. CIPROFLOXACIN. [Concomitant]
     Active Substance: CIPROFLOXACIN
     Indication: ARTHRITIS REACTIVE
  9. MYCOPHENOLATE MOFETIL. [Suspect]
     Active Substance: MYCOPHENOLATE MOFETIL
     Indication: MICROSCOPIC POLYANGIITIS
     Dosage: 1 GRAM, QD
     Route: 065
     Dates: start: 201109
  10. ISONIAZID. [Concomitant]
     Active Substance: ISONIAZID
     Indication: PULMONARY TUBERCULOSIS
     Dosage: UNK
     Route: 065

REACTIONS (6)
  - Sacroiliitis [Unknown]
  - Therapeutic product effect decreased [Unknown]
  - Tuberculosis [Unknown]
  - Optic neuritis [Unknown]
  - Pulmonary tuberculosis [Unknown]
  - Infection susceptibility increased [Unknown]
